FAERS Safety Report 7250555-7 (Version None)
Quarter: 2011Q1

REPORT INFORMATION
  Report Type: 
  Country: None (occurrence: None)
  Receive Date: 20110128
  Receipt Date: 20110125
  Transmission Date: 20110831
  Serious: Yes (Death)
  Sender: FDA-Public Use
  Company Number: PHEH2007US16404

PATIENT
  Sex: Female
  Weight: 62 kg

DRUGS (1)
  1. EXJADE [Suspect]
     Indication: IRON OVERLOAD
     Dosage: 250 MG, UNK
     Route: 048
     Dates: start: 20060115, end: 20070309

REACTIONS (1)
  - MYELOFIBROSIS [None]
